FAERS Safety Report 20940656 (Version 1)
Quarter: 2022Q2

REPORT INFORMATION
  Report Type: Spontaneous
  Country: US (occurrence: US)
  Receive Date: 20220609
  Receipt Date: 20220609
  Transmission Date: 20220721
  Serious: No
  Sender: FDA-Public Use
  Company Number: US-INTERCEPT-PM2021001969

PATIENT
  Sex: Male

DRUGS (5)
  1. OCALIVA [Suspect]
     Active Substance: OBETICHOLIC ACID
     Indication: Primary biliary cholangitis
     Dosage: 10 MILLIGRAM, QD
     Route: 048
     Dates: start: 20161217
  2. URSODIOL [Concomitant]
     Active Substance: URSODIOL
  3. CHOLESTYRAMINE [Concomitant]
     Active Substance: CHOLESTYRAMINE
  4. RIFAMPIN [Concomitant]
     Active Substance: RIFAMPIN
     Dosage: 3 DOSAGE FORM, QD
  5. RIFAMPIN [Concomitant]
     Active Substance: RIFAMPIN
     Dosage: 2 DOSAGE FORM, QD

REACTIONS (1)
  - Pruritus [Unknown]

NARRATIVE: CASE EVENT DATE: 20210101
